FAERS Safety Report 5444368-6 (Version None)
Quarter: 2007Q3

REPORT INFORMATION
  Report Type: 
  Country: None (occurrence: None)
  Receive Date: 20070904
  Receipt Date: 20070904
  Transmission Date: 20080115
  Serious: No
  Sender: FDA-Public Use
  Company Number: None

PATIENT
  Sex: Female
  Weight: 72.1219 kg

DRUGS (2)
  1. ZETIA [Suspect]
     Indication: BLOOD CHOLESTEROL
     Dosage: 1 DAILY/TRI-WEEKLY PO
     Route: 048
     Dates: start: 20070301, end: 20070814
  2. LIPITOR [Suspect]
     Indication: BLOOD CHOLESTEROL
     Dosage: 1 DAILY PO
     Route: 048
     Dates: start: 20021101, end: 20060701

REACTIONS (10)
  - ASTHENIA [None]
  - BLOOD CHOLESTEROL INCREASED [None]
  - COLD SWEAT [None]
  - DYSPNOEA [None]
  - DYSSTASIA [None]
  - MALAISE [None]
  - NAUSEA [None]
  - PALLOR [None]
  - SKIN DISCOLOURATION [None]
  - TREMOR [None]
